FAERS Safety Report 16475137 (Version 1)
Quarter: 2019Q2

REPORT INFORMATION
  Report Type: Report from Study
  Country: US (occurrence: US)
  Receive Date: 20190625
  Receipt Date: 20190625
  Transmission Date: 20190711
  Serious: Yes (Other)
  Sender: FDA-Public Use
  Company Number: PHEH2019US025823

PATIENT
  Sex: Male

DRUGS (2)
  1. ILARIS [Suspect]
     Active Substance: CANAKINUMAB
     Dosage: 0.7 ML, Q4W
     Route: 058
     Dates: start: 20190605
  2. ILARIS [Suspect]
     Active Substance: CANAKINUMAB
     Indication: STILL^S DISEASE
     Dosage: 0.55 ML, QMO
     Route: 058
     Dates: start: 20190115

REACTIONS (6)
  - Decreased activity [Recovering/Resolving]
  - Abdominal pain [Recovering/Resolving]
  - Condition aggravated [Unknown]
  - Rash papular [Recovered/Resolved]
  - Still^s disease [Unknown]
  - Diarrhoea [Recovering/Resolving]
